FAERS Safety Report 5761764-8 (Version None)
Quarter: 2008Q2

REPORT INFORMATION
  Report Type: 
  Country: None (occurrence: None)
  Receive Date: 20080602
  Receipt Date: 20080523
  Transmission Date: 20081010
  Serious: Yes (Hospitalization)
  Sender: FDA-Public Use
  Company Number: 163-21880-08050405

PATIENT
  Age: 15 Year
  Sex: Male

DRUGS (1)
  1. REVLIMID [Suspect]
     Indication: BRAIN NEOPLASM MALIGNANT
     Dosage: 15 MG, 1 IN 1 D, ORAL
     Route: 048
     Dates: start: 20080116

REACTIONS (2)
  - COMA [None]
  - NEOPLASM PROGRESSION [None]
